FAERS Safety Report 19715884 (Version 1)
Quarter: 2021Q3

REPORT INFORMATION
  Report Type: Report from Study
  Country: GB (occurrence: GB)
  Receive Date: 20210818
  Receipt Date: 20210818
  Transmission Date: 20211014
  Serious: Yes (Other)
  Sender: FDA-Public Use
  Company Number: GB-MYLANLABS-2021M1052177

PATIENT

DRUGS (1)
  1. CISPLATIN. [Suspect]
     Active Substance: CISPLATIN
     Indication: BILE DUCT CANCER
     Dosage: 25 MILLIGRAM/SQ. METER, CYCLE (ON DAYS 1 AND 8 OF A 21?DAY CYCLE)

REACTIONS (2)
  - Haematemesis [Unknown]
  - Vomiting [Unknown]
